FAERS Safety Report 23665254 (Version 1)
Quarter: 2024Q1

REPORT INFORMATION
  Report Type: Spontaneous
  Country: CH (occurrence: CH)
  Receive Date: 20240322
  Receipt Date: 20240322
  Transmission Date: 20240409
  Serious: Yes (Hospitalization, Other)
  Sender: FDA-Public Use
  Company Number: None

PATIENT
  Age: 76 Year
  Sex: Male
  Weight: 70 kg

DRUGS (4)
  1. IPILIMUMAB [Suspect]
     Active Substance: IPILIMUMAB
     Indication: Metastatic malignant melanoma
     Dosage: CYCLICAL
     Route: 042
     Dates: start: 20231220, end: 20240201
  2. NIVOLUMAB [Suspect]
     Active Substance: NIVOLUMAB
     Indication: Metastatic malignant melanoma
     Dosage: CYCLICAL
     Route: 042
     Dates: start: 20231220, end: 20240201
  3. PREDNISONE [Concomitant]
     Active Substance: PREDNISONE
     Indication: Product used for unknown indication
     Route: 048
  4. PANTOZOL [Concomitant]
     Active Substance: PANTOPRAZOLE SODIUM
     Indication: Product used for unknown indication
     Route: 048

REACTIONS (5)
  - Myocarditis [Not Recovered/Not Resolved]
  - Off label use [Unknown]
  - Pneumocystis jirovecii pneumonia [Unknown]
  - Fungal infection [Unknown]
  - Hepatitis [Recovering/Resolving]

NARRATIVE: CASE EVENT DATE: 20231231
